FAERS Safety Report 9231517 (Version 2)
Quarter: 2013Q2

REPORT INFORMATION
  Report Type: Spontaneous
  Country: BR (occurrence: BR)
  Receive Date: 20130415
  Receipt Date: 20130416
  Transmission Date: 20140414
  Serious: Yes (Other)
  Sender: FDA-Public Use
  Company Number: PHHY2013BR035708

PATIENT
  Sex: Female

DRUGS (1)
  1. RITALINA [Suspect]
     Dosage: 10 MG, UNK

REACTIONS (3)
  - Depression [Unknown]
  - Drug withdrawal syndrome [Unknown]
  - Exposure during pregnancy [Unknown]
